FAERS Safety Report 20841148 (Version 5)
Quarter: 2022Q3

REPORT INFORMATION
  Report Type: Spontaneous
  Country: CO (occurrence: CO)
  Receive Date: 20220517
  Receipt Date: 20220706
  Transmission Date: 20221026
  Serious: Yes (Hospitalization, Other)
  Sender: FDA-Public Use
  Company Number: CO-SA-SAC20220510001575

PATIENT

DRUGS (3)
  1. LARONIDASE [Suspect]
     Active Substance: LARONIDASE
     Indication: Mucopolysaccharidosis I
     Dosage: 8.75 MG, Q8D
     Route: 042
     Dates: start: 20201216
  2. LARONIDASE [Suspect]
     Active Substance: LARONIDASE
     Dosage: 8.75 MG, QW
     Route: 042
     Dates: start: 20201216
  3. DOMPERIDONE [Concomitant]
     Active Substance: DOMPERIDONE
     Indication: Premedication
     Dosage: ONE TABLESPOON OF DOMPERIDONE IN SYRUP
     Dates: start: 202203

REACTIONS (7)
  - Thrombocytopenia [Recovered/Resolved]
  - Pneumonia [Recovered/Resolved]
  - Pyrexia [Recovered/Resolved]
  - Umbilical hernia [Recovering/Resolving]
  - Rash [Recovered/Resolved]
  - Diarrhoea [Recovered/Resolved]
  - Vomiting [Recovered/Resolved]

NARRATIVE: CASE EVENT DATE: 20211101
